FAERS Safety Report 7432940-3 (Version None)
Quarter: 2011Q2

REPORT INFORMATION
  Report Type: 
  Country: None (occurrence: None)
  Receive Date: 20110422
  Receipt Date: 20110415
  Transmission Date: 20111010
  Serious: No
  Sender: FDA-Public Use
  Company Number: US-PFIZER INC-2011083381

PATIENT
  Age: 18 Year
  Sex: Female

DRUGS (2)
  1. GEODON [Suspect]
     Indication: SCHIZOPHRENIA
     Dosage: UNK
     Dates: start: 20110101
  2. LATUDA [Suspect]
     Indication: SCHIZOPHRENIA
     Dosage: 40 MG, UNK
     Dates: start: 20110101

REACTIONS (1)
  - SEDATION [None]
